FAERS Safety Report 21272662 (Version 1)
Quarter: 2022Q3

REPORT INFORMATION
  Report Type: Spontaneous
  Country: SO (occurrence: SO)
  Receive Date: 20220830
  Receipt Date: 20220830
  Transmission Date: 20221026
  Serious: Yes (Death, Other)
  Sender: FDA-Public Use
  Company Number: SO-SUN PHARMACEUTICAL INDUSTRIES LTD-2022RR-352734

PATIENT
  Age: 31 Year
  Sex: Male

DRUGS (5)
  1. WARFARIN [Suspect]
     Active Substance: WARFARIN
     Indication: Product used for unknown indication
     Dosage: 2 MILLIGRAM, ONCE EVERY 4 DAYS
     Route: 065
  2. LAMOTRIGINE [Suspect]
     Active Substance: LAMOTRIGINE
     Indication: Epilepsy
     Dosage: 100 MILLIGRAM
     Route: 065
  3. PHENYTOIN [Suspect]
     Active Substance: PHENYTOIN
     Indication: Epilepsy
     Dosage: 100 MILLIGRAM
     Route: 065
  4. valsartan plus hydrochlorothiazide 160/12.5 [Concomitant]
     Indication: Product used for unknown indication
     Dosage: 160/12.5
     Route: 065
  5. arthemeter lumefantrine 20/120 mg [Concomitant]
     Indication: Product used for unknown indication
     Dosage: 20/120 MG
     Route: 065

REACTIONS (2)
  - Subdural haematoma [Fatal]
  - International normalised ratio increased [Recovered/Resolved]
